FAERS Safety Report 5032583-5 (Version None)
Quarter: 2006Q2

REPORT INFORMATION
  Report Type: 
  Country: None (occurrence: None)
  Receive Date: 20060515
  Receipt Date: 20060120
  Transmission Date: 20061013
  Serious: No
  Sender: FDA-Public Use
  Company Number: S06-USA-00262-01

PATIENT
  Age: 70 Year
  Sex: Male

DRUGS (9)
  1. NAMENDA [Suspect]
     Indication: CIRCULATORY COLLAPSE
     Dosage: 10 MG BID PO
     Route: 048
     Dates: start: 20050101
  2. NAMENDA [Suspect]
     Indication: NERVOUS SYSTEM DISORDER
     Dosage: 10 MG BID PO
     Route: 048
     Dates: start: 20050101
  3. NAMENDA [Suspect]
     Indication: CIRCULATORY COLLAPSE
     Dosage: 5 MG QD PO
     Route: 048
     Dates: start: 20050101, end: 20050101
  4. NAMENDA [Suspect]
     Indication: NERVOUS SYSTEM DISORDER
     Dosage: 5 MG QD PO
     Route: 048
     Dates: start: 20050101, end: 20050101
  5. NAMENDA [Suspect]
     Indication: CIRCULATORY COLLAPSE
     Dosage: 5 MG BID PO
     Route: 048
     Dates: start: 20050101, end: 20050101
  6. NAMENDA [Suspect]
     Indication: NERVOUS SYSTEM DISORDER
     Dosage: 5 MG BID PO
     Route: 048
     Dates: start: 20050101, end: 20050101
  7. NAMENDA [Suspect]
     Indication: CIRCULATORY COLLAPSE
     Dosage: 15 MG QD PO
     Route: 048
     Dates: start: 20050101, end: 20050101
  8. NAMENDA [Suspect]
     Indication: NERVOUS SYSTEM DISORDER
     Dosage: 15 MG QD PO
     Route: 048
     Dates: start: 20050101, end: 20050101
  9. ARICEPT (DONPEZIL HYDROCHLORIDE) [Concomitant]

REACTIONS (3)
  - AMNESIA [None]
  - BLOOD GLUCOSE INCREASED [None]
  - DRUG INTERACTION [None]
